FAERS Safety Report 13618955 (Version 1)
Quarter: 2017Q2

REPORT INFORMATION
  Report Type: Spontaneous
  Country: US (occurrence: US)
  Receive Date: 20170606
  Receipt Date: 20170606
  Transmission Date: 20170830
  Serious: No
  Sender: FDA-Public Use
  Company Number: US-AMGEN-USASP2017044204

PATIENT
  Age: 63 Year
  Sex: Male

DRUGS (16)
  1. ARANESP [Suspect]
     Active Substance: DARBEPOETIN ALFA
     Indication: NEPHROGENIC ANAEMIA
     Dosage: 25 MUG, Q2WK
     Route: 065
  2. TRAZODONE [Concomitant]
     Active Substance: TRAZODONE HYDROCHLORIDE
     Dosage: 50 MG, QD
  3. ASPIRIN. [Concomitant]
     Active Substance: ASPIRIN
     Dosage: 81 MG, UNK
  4. INSULIN GLARGINE [Concomitant]
     Active Substance: INSULIN GLARGINE
     Dosage: 15 UNIT, (AT BEDTIME)
     Route: 058
  5. SAXAGLIPTINE [Concomitant]
     Active Substance: SAXAGLIPTIN
     Dosage: UNK
  6. GABAPENTIN. [Concomitant]
     Active Substance: GABAPENTIN
     Dosage: UNK UNK, QD
  7. PANTOPRAZOLE [Concomitant]
     Active Substance: PANTOPRAZOLE
     Dosage: UNK UNK, QD (1 EACH DAY)
  8. PRAVASTATIN. [Concomitant]
     Active Substance: PRAVASTATIN
     Dosage: UNK UNK, QD
  9. TAMSULOSIN [Concomitant]
     Active Substance: TAMSULOSIN
     Dosage: UNK UNK, QD
  10. FOLIC ACID. [Concomitant]
     Active Substance: FOLIC ACID
     Dosage: UNK UNK, QD
  11. LATANOPROST. [Concomitant]
     Active Substance: LATANOPROST
     Dosage: (ONE DROP INTO EACH EYE AT BEDTIME)
     Route: 031
  12. CARVEDILOL. [Concomitant]
     Active Substance: CARVEDILOL
     Dosage: UNK UNK, BID
  13. LEVOTHYROXINE. [Concomitant]
     Active Substance: LEVOTHYROXINE
     Dosage: (HALF A TABLET EACH MORNING) QD
  14. EPOGEN [Suspect]
     Active Substance: ERYTHROPOIETIN
     Indication: NEPHROGENIC ANAEMIA
     Dosage: UNK
     Route: 065
     Dates: end: 20161208
  15. INSULIN ASPART [Concomitant]
     Active Substance: INSULIN ASPART
     Dosage: 1 TO 6 UNITS, BEFORE MEAL
     Route: 058
  16. CHLORTHALIDONE. [Concomitant]
     Active Substance: CHLORTHALIDONE
     Dosage: UNK UNK, QD

REACTIONS (4)
  - Malaise [Unknown]
  - Wound [Not Recovered/Not Resolved]
  - Abdominal pain upper [Unknown]
  - Nausea [Unknown]
